FAERS Safety Report 12537980 (Version 1)
Quarter: 2016Q3

REPORT INFORMATION
  Report Type: Spontaneous
  Country: FR (occurrence: FR)
  Receive Date: 20160707
  Receipt Date: 20160707
  Transmission Date: 20161109
  Serious: Yes (Hospitalization)
  Sender: FDA-Public Use
  Company Number: FR-SA-2016SA120176

PATIENT
  Age: 26 Year
  Sex: Female

DRUGS (5)
  1. STILNOX [Suspect]
     Active Substance: ZOLPIDEM TARTRATE
     Route: 048
     Dates: start: 20160119, end: 20160119
  2. ALPRAZOLAM. [Suspect]
     Active Substance: ALPRAZOLAM
     Route: 048
     Dates: start: 20160119, end: 20160119
  3. PARACETAMOL [Suspect]
     Active Substance: ACETAMINOPHEN
     Dosage: INTAKE BETWEEN 00:00 AND 1:00 IN THE MORNING
     Route: 048
     Dates: start: 20160119, end: 20160119
  4. ZOPICLONE [Suspect]
     Active Substance: ZOPICLONE
     Route: 048
     Dates: start: 20160119, end: 20160119
  5. IBUPROFEN. [Suspect]
     Active Substance: IBUPROFEN
     Route: 048
     Dates: start: 20160119, end: 20160119

REACTIONS (2)
  - Somnolence [Recovered/Resolved]
  - Acute hepatic failure [Recovered/Resolved]

NARRATIVE: CASE EVENT DATE: 20160119
